FAERS Safety Report 6267875-5 (Version None)
Quarter: 2009Q3

REPORT INFORMATION
  Report Type: 
  Country: None (occurrence: None)
  Receive Date: 20090714
  Receipt Date: 20080311
  Transmission Date: 20100115
  Serious: No
  Sender: FDA-Public Use
  Company Number: ES-AVENTIS-200811950GDDC

PATIENT
  Sex: Female

DRUGS (1)
  1. LANTUS [Suspect]
     Route: 058

REACTIONS (5)
  - DAYDREAMING [None]
  - FACIAL SPASM [None]
  - INFLAMMATION [None]
  - NERVOUS SYSTEM DISORDER [None]
  - RESPIRATORY DISORDER [None]
